FAERS Safety Report 7337844-2 (Version None)
Quarter: 2011Q1

REPORT INFORMATION
  Report Type: 
  Country: None (occurrence: None)
  Receive Date: 20110308
  Receipt Date: 20110228
  Transmission Date: 20110831
  Serious: Yes (Hospitalization)
  Sender: FDA-Public Use
  Company Number: AU-ROCHE-757060

PATIENT
  Sex: Male
  Weight: 87 kg

DRUGS (4)
  1. PARACETAMOL [Concomitant]
     Dosage: FREQUENCY: PRN
     Route: 048
     Dates: start: 20110110
  2. OXALIPLATIN [Suspect]
     Indication: RECTAL CANCER
     Dosage: LAST DOSE PRIOR TO SAE: 17 JANUARY 2011. DOSE REDUCED.
     Route: 042
     Dates: start: 20101220
  3. METOCLOPRAMID [Concomitant]
     Dosage: FREQUENCY: PRN
     Route: 048
     Dates: start: 20101220, end: 20101227
  4. CAPECITABINE [Suspect]
     Indication: RECTAL CANCER
     Dosage: ACTUAL DOSE GIVEN: 1500 MG. LAST DOSE PRIOR TO SAE: 21 JANUARY 2011. THERAPY HELD.
     Route: 048
     Dates: start: 20101220

REACTIONS (1)
  - GASTROENTERITIS RADIATION [None]
